FAERS Safety Report 9765429 (Version 1)
Quarter: 2013Q4

REPORT INFORMATION
  Report Type: Spontaneous
  Country: US (occurrence: US)
  Receive Date: 20131217
  Receipt Date: 20131217
  Transmission Date: 20140711
  Serious: No
  Sender: FDA-Public Use
  Company Number: US-BIOGENIDEC-2013BI111458

PATIENT
  Age: 63 Year
  Sex: Female

DRUGS (23)
  1. TECFIDERA [Suspect]
     Indication: MULTIPLE SCLEROSIS
     Route: 048
     Dates: start: 20131024
  2. ACIPHEX [Concomitant]
  3. ADVAIR DISKUS [Concomitant]
  4. AMANTADINE HCL [Concomitant]
  5. AVAPRO [Concomitant]
  6. BUSPIRONE HCL [Concomitant]
  7. BYSTOLIC [Concomitant]
  8. CRESTOR [Concomitant]
  9. CYMBALTA [Concomitant]
  10. EPIPEN [Concomitant]
  11. FERROUS SULFATE [Concomitant]
  12. FUROSEMIDE [Concomitant]
  13. LEVOXYL [Concomitant]
  14. MAGNESIUM ASPARTATE [Concomitant]
  15. NEURONTIN [Concomitant]
  16. OXYBUTYNIN CHLORIDE ER [Concomitant]
  17. SINGULAIR [Concomitant]
  18. TRIMETHOBENZAMIDE HCL [Concomitant]
  19. XANAX [Concomitant]
  20. XANAFLEX [Concomitant]
  21. POTASSIUM CHLORIDE [Concomitant]
  22. PROCRIT [Concomitant]
  23. PROVIGIL [Concomitant]

REACTIONS (2)
  - Fatigue [Unknown]
  - Depressed mood [Unknown]
